FAERS Safety Report 16398320 (Version 1)
Quarter: 2019Q2

REPORT INFORMATION
  Report Type: Spontaneous
  Country: CA (occurrence: CA)
  Receive Date: 20190606
  Receipt Date: 20190606
  Transmission Date: 20190711
  Serious: Yes (Death)
  Sender: FDA-Public Use
  Company Number: CA-PFIZER INC-2019240692

PATIENT
  Sex: Female

DRUGS (3)
  1. SINEMET [Suspect]
     Active Substance: CARBIDOPA\LEVODOPA
     Dosage: UNK
     Route: 048
  2. TIMOLOL MALEATE. [Suspect]
     Active Substance: TIMOLOL MALEATE
     Dosage: UNK
     Route: 048
  3. LATANOPROST. [Suspect]
     Active Substance: LATANOPROST
     Dosage: UNK, 1X/DAY
     Route: 065

REACTIONS (2)
  - Death [Fatal]
  - Drug ineffective [Fatal]
